FAERS Safety Report 14761868 (Version 2)
Quarter: 2018Q3

REPORT INFORMATION
  Report Type: Spontaneous
  Country: US (occurrence: US)
  Receive Date: 20180416
  Receipt Date: 20180814
  Transmission Date: 20181010
  Serious: Yes (Hospitalization)
  Sender: FDA-Public Use
  Company Number: US-SUN PHARMACEUTICAL INDUSTRIES LTD-2018US-169801

PATIENT
  Age: 56 Year
  Sex: Male

DRUGS (7)
  1. AMOXICILLIN/CLAVULANATE [Suspect]
     Active Substance: AMOXICILLIN\CLAVULANATE POTASSIUM
     Indication: BACTERIAL PYELONEPHRITIS
     Dosage: DAY ?13 TO ?9
     Route: 065
  2. CEFALEXIN [Suspect]
     Active Substance: CEPHALEXIN
     Indication: BACTERIAL PYELONEPHRITIS
     Dosage: DAY ?26 TO ?20
     Route: 065
  3. CIPROFLOXACIN. [Suspect]
     Active Substance: CIPROFLOXACIN
     Indication: BACTERIAL PYELONEPHRITIS
     Dosage: DAY ?13 TO ?9
     Route: 065
  4. CEFALEXIN [Suspect]
     Active Substance: CEPHALEXIN
     Dosage: DAY ?13
     Route: 065
  5. PIPERACILLIN/TAZOBACTAM [Suspect]
     Active Substance: PIPERACILLIN SODIUM\TAZOBACTAM SODIUM
     Indication: BACTERIAL PYELONEPHRITIS
     Dosage: DAY ?17 TO ?14
     Route: 065
  6. CEFTRIAXONE. [Suspect]
     Active Substance: CEFTRIAXONE
     Indication: BACTERIAL PYELONEPHRITIS
     Dosage: DAY ?30 TO ?27
     Route: 065
  7. METRONIDAZOLE. [Suspect]
     Active Substance: METRONIDAZOLE
     Indication: BACTERIAL PYELONEPHRITIS
     Dosage: DAY ?17 TO ?14
     Route: 065

REACTIONS (1)
  - Drug ineffective [Unknown]
